FAERS Safety Report 4958900-X (Version None)
Quarter: 2006Q1

REPORT INFORMATION
  Report Type: 
  Country: None (occurrence: None)
  Receive Date: 20060324
  Receipt Date: 20060308
  Transmission Date: 20060701
  Serious: Yes (Life-Threatening, Hospitalization, Disabling)
  Sender: FDA-Public Use
  Company Number: 356278

PATIENT
  Age: 12 Year
  Sex: Female
  Weight: 65.8 kg

DRUGS (1)
  1. ACCUTANE [Suspect]
     Indication: ACNE
     Dosage: 40 MG 2 PER DAY ORAL
     Route: 048
     Dates: start: 19961229, end: 19970221

REACTIONS (86)
  - AGITATION [None]
  - AGNOSIA [None]
  - ALLERGY TO ANIMAL [None]
  - ANAL FISSURE [None]
  - ANAPHYLACTIC REACTION [None]
  - ANGER [None]
  - AORTIC VALVE INCOMPETENCE [None]
  - ASTHENIA [None]
  - AUTOIMMUNE DISORDER [None]
  - BENIGN INTRACRANIAL HYPERTENSION [None]
  - BLEEDING TIME PROLONGED [None]
  - BLINDNESS CORTICAL [None]
  - BRAIN HERNIATION [None]
  - CERVICOBRACHIAL SYNDROME [None]
  - COLITIS ULCERATIVE [None]
  - CONFUSIONAL STATE [None]
  - DEPRESSION [None]
  - DILATATION VENTRICULAR [None]
  - DISEASE RECURRENCE [None]
  - DISTURBANCE IN ATTENTION [None]
  - DIZZINESS [None]
  - DYSPHAGIA [None]
  - DYSPNOEA [None]
  - DYSTHYMIC DISORDER [None]
  - EMOTIONAL DISTRESS [None]
  - ENCOPRESIS [None]
  - ENDOMETRIOSIS [None]
  - FACIAL PALSY [None]
  - FATIGUE [None]
  - FLUID RETENTION [None]
  - GASTROINTESTINAL DISORDER [None]
  - HALLUCINATION [None]
  - HEADACHE [None]
  - HEPATITIS [None]
  - HEPATOSPLENOMEGALY [None]
  - HYPERTENSION [None]
  - HYPOAESTHESIA [None]
  - ILEUS [None]
  - INFLAMMATORY BOWEL DISEASE [None]
  - INSOMNIA [None]
  - INTERVERTEBRAL DISC DEGENERATION [None]
  - INTESTINAL DILATATION [None]
  - INTRACRANIAL PRESSURE INCREASED [None]
  - IRRITABLE BOWEL SYNDROME [None]
  - ISCHAEMIC CEREBRAL INFARCTION [None]
  - JOINT SWELLING [None]
  - LOSS OF CONSCIOUSNESS [None]
  - LUPUS NEPHRITIS [None]
  - LYMPHOID TISSUE HYPERPLASIA [None]
  - MEGACOLON [None]
  - MEMORY IMPAIRMENT [None]
  - MENINGOMYELOCELE [None]
  - MENTAL DISORDER [None]
  - MITRAL VALVE INCOMPETENCE [None]
  - MULTI-ORGAN DISORDER [None]
  - MYOPIA [None]
  - NASAL DRYNESS [None]
  - NECK PAIN [None]
  - NERVOUS SYSTEM DISORDER [None]
  - OEDEMA PERIPHERAL [None]
  - PAIN [None]
  - PANCREATITIS [None]
  - PARAESTHESIA [None]
  - PERICARDIAL EFFUSION [None]
  - PHARYNGOLARYNGEAL PAIN [None]
  - POLYP [None]
  - PSYCHOTIC DISORDER [None]
  - RAYNAUD'S PHENOMENON [None]
  - RECTAL TENESMUS [None]
  - RENAL FAILURE [None]
  - ROAD TRAFFIC ACCIDENT [None]
  - STAPHYLOCOCCAL INFECTION [None]
  - SWELLING FACE [None]
  - SYNCOPE [None]
  - SYSTEMIC LUPUS ERYTHEMATOSUS [None]
  - TRICUSPID VALVE INCOMPETENCE [None]
  - UPPER RESPIRATORY TRACT INFECTION [None]
  - URETHRAL DISORDER [None]
  - URINARY TRACT INFECTION BACTERIAL [None]
  - VAGINAL HAEMORRHAGE [None]
  - VASCULITIS [None]
  - VIRAL PHARYNGITIS [None]
  - VISION BLURRED [None]
  - VULVOVAGINAL MYCOTIC INFECTION [None]
  - WEGENER'S GRANULOMATOSIS [None]
  - WEIGHT INCREASED [None]
